FAERS Safety Report 23343487 (Version 1)
Quarter: 2023Q4

REPORT INFORMATION
  Report Type: Spontaneous
  Country: US (occurrence: US)
  Receive Date: 20231227
  Receipt Date: 20231227
  Transmission Date: 20240110
  Serious: No
  Sender: FDA-Public Use
  Company Number: US-PFIZER INC-202300446718

PATIENT
  Age: 63 Year
  Sex: Female
  Weight: 51.26 kg

DRUGS (3)
  1. PAXLOVID [Suspect]
     Active Substance: NIRMATRELVIR\RITONAVIR
     Indication: COVID-19 treatment
     Dosage: 300 MG, 2X/DAY
     Route: 048
     Dates: start: 20231212, end: 20231213
  2. CALCIUM WITH VITAMIN D 3 [Concomitant]
     Indication: Osteopenia
     Dosage: 600; TAKE 2 A DAY
     Route: 048
  3. HERBALS\TURMERIC [Concomitant]
     Active Substance: HERBALS\TURMERIC
     Indication: Arthritis
     Dosage: 1000UNITS. TAKE 1 ONCE A DAY
     Route: 048

REACTIONS (2)
  - Alopecia [Not Recovered/Not Resolved]
  - Incorrect dose administered [Unknown]

NARRATIVE: CASE EVENT DATE: 20231212
